FAERS Safety Report 8258136-3 (Version None)
Quarter: 2012Q2

REPORT INFORMATION
  Report Type: 
  Country: None (occurrence: None)
  Receive Date: 20120404
  Receipt Date: 20120323
  Transmission Date: 20120825
  Serious: Yes (Other)
  Sender: FDA-Public Use
  Company Number: PHHY2012MX027363

PATIENT
  Sex: Female

DRUGS (3)
  1. EXFORGE HCT [Suspect]
     Indication: HYPERTENSION
     Dosage: 1 DF, QD
     Dates: start: 20120201
  2. EXFORGE HCT [Suspect]
     Dosage: 0.5 DF, QD
  3. GABAPENTIN [Concomitant]
     Dosage: 1 DF, QD
     Dates: start: 20120201

REACTIONS (4)
  - MICTURITION URGENCY [None]
  - CEREBROVASCULAR DISORDER [None]
  - EYE HAEMORRHAGE [None]
  - SPEECH DISORDER [None]
